FAERS Safety Report 4274237-9 (Version None)
Quarter: 2004Q1

REPORT INFORMATION
  Report Type: 
  Country: None (occurrence: None)
  Receive Date: 20040115
  Receipt Date: 20040108
  Transmission Date: 20041129
  Serious: Yes (Death)
  Sender: FDA-Public Use
  Company Number: 163-20785-03100318

PATIENT
  Age: 55 Year
  Sex: Male

DRUGS (1)
  1. THALOMID [Suspect]
     Indication: AMYLOIDOSIS
     Dosage: 50 MG, QOD, ORAL
     Route: 048
     Dates: start: 20030518, end: 20030603

REACTIONS (2)
  - DISEASE PROGRESSION [None]
  - RENAL FAILURE [None]
